FAERS Safety Report 10150290 (Version 2)
Quarter: 2014Q4

REPORT INFORMATION
  Report Type: Report from Study
  Country: DE (occurrence: DE)
  Receive Date: 20140502
  Receipt Date: 20141014
  Transmission Date: 20150528
  Serious: Yes (Hospitalization)
  Sender: FDA-Public Use
  Company Number: DE-BRISTOL-MYERS SQUIBB COMPANY-20664579

PATIENT
  Age: 71 Year
  Sex: Female

DRUGS (1)
  1. ABATACEPT SUBQ INJECTION 125MG/ML [Suspect]
     Active Substance: ABATACEPT
     Indication: RHEUMATOID ARTHRITIS
     Dosage: RESTARTED ON 07-FEB-2014.
     Route: 058
     Dates: end: 20131103

REACTIONS (8)
  - Sciatica [Recovered/Resolved]
  - Surgery [Recovered/Resolved]
  - Carpal tunnel syndrome [Recovered/Resolved]
  - Intervertebral disc protrusion [Recovered/Resolved]
  - Lumbar vertebral fracture [Recovered/Resolved]
  - Rheumatoid arthritis [Recovered/Resolved]
  - Paresis [Unknown]
  - Dysuria [Recovered/Resolved]

NARRATIVE: CASE EVENT DATE: 20131020
